FAERS Safety Report 19712860 (Version 4)
Quarter: 2022Q1

REPORT INFORMATION
  Report Type: Spontaneous
  Country: JP (occurrence: JP)
  Receive Date: 20210816
  Receipt Date: 20220104
  Transmission Date: 20220423
  Serious: Yes (Other)
  Sender: FDA-Public Use
  Company Number: JP-ONO-2021JP017218

PATIENT

DRUGS (1)
  1. ONGENTYS [Suspect]
     Active Substance: OPICAPONE
     Indication: Parkinson^s disease
     Dosage: UNK, UNKNOWN
     Route: 048

REACTIONS (4)
  - Pneumonia aspiration [Unknown]
  - Eating disorder [Unknown]
  - Dysphagia [Unknown]
  - Circumstance or information capable of leading to medication error [Unknown]
